FAERS Safety Report 5890415-7 (Version None)
Quarter: 2008Q3

REPORT INFORMATION
  Report Type: 
  Country: None (occurrence: None)
  Receive Date: 20080921
  Receipt Date: 20080910
  Transmission Date: 20090109
  Serious: Yes (Death)
  Sender: FDA-Public Use
  Company Number: FR-JNJFOC-20080902604

PATIENT
  Sex: Male
  Weight: 3.3 kg

DRUGS (3)
  1. REMICADE [Suspect]
     Indication: DRUG EXPOSURE DURING PREGNANCY
     Route: 015
  2. IMUREL [Suspect]
     Indication: DRUG EXPOSURE DURING PREGNANCY
     Route: 015
  3. SOLUPRED [Suspect]
     Indication: DRUG EXPOSURE DURING PREGNANCY
     Route: 015

REACTIONS (2)
  - NEONATAL RESPIRATORY DISTRESS SYNDROME [None]
  - PULMONARY ARTERIAL HYPERTENSION [None]
